FAERS Safety Report 7606204-9 (Version None)
Quarter: 2011Q3

REPORT INFORMATION
  Report Type: 
  Country: None (occurrence: None)
  Receive Date: 20110713
  Receipt Date: 20110627
  Transmission Date: 20111222
  Serious: Yes (Hospitalization, Other)
  Sender: FDA-Public Use
  Company Number: US-BAYER-2011-034744

PATIENT
  Age: 26 Year
  Sex: Female
  Weight: 61.224 kg

DRUGS (7)
  1. BROMFED-DM [Concomitant]
     Dosage: UNK
     Dates: start: 20100222
  2. YASMIN [Suspect]
     Indication: PREMENSTRUAL SYNDROME
     Dosage: UNK
     Dates: start: 20040404, end: 20080703
  3. XANAX [Concomitant]
     Dosage: 0.5 MG, QD
  4. AZITHROMYCIN [Concomitant]
     Dosage: 250 MG, UNK
     Dates: start: 20100222
  5. DROSPIRENONE AND ETHINYL ESTRADIOL [Suspect]
     Indication: PREMENSTRUAL SYNDROME
     Dosage: UNK
     Dates: start: 20080718, end: 20100319
  6. AZITHROMYCIN [Concomitant]
     Dosage: 250 MG, UNK
     Dates: start: 20091228
  7. NEXIUM [Concomitant]
     Dosage: 40 MG, UNK
     Dates: start: 20100222

REACTIONS (3)
  - CHOLELITHIASIS [None]
  - CHOLECYSTITIS CHRONIC [None]
  - INJURY [None]
